FAERS Safety Report 9762810 (Version 1)
Quarter: 2013Q4

REPORT INFORMATION
  Report Type: Spontaneous
  Country: FR (occurrence: None)
  Receive Date: 20131213
  Receipt Date: 20131213
  Transmission Date: 20140711
  Serious: Yes (Hospitalization)
  Sender: FDA-Public Use
  Company Number: ORE201312-000050

PATIENT
  Age: 26 Year
  Sex: Male

DRUGS (2)
  1. BUPRENORPHINE [Suspect]
     Route: 042
  2. HYPERBARIC CHAMBER MIX [Suspect]
     Dosage: 20 SESSIONS OF 90-MIN AT  2.5 ATA

REACTIONS (3)
  - Ischaemia [None]
  - Enterobacter infection [None]
  - Urethritis [None]
